FAERS Safety Report 7642599-8 (Version None)
Quarter: 2011Q3

REPORT INFORMATION
  Report Type: 
  Country: None (occurrence: None)
  Receive Date: 20110728
  Receipt Date: 20110725
  Transmission Date: 20111222
  Serious: Yes (Life-Threatening, Hospitalization, Other)
  Sender: FDA-Public Use
  Company Number: FR-PFIZER INC-2011160326

PATIENT
  Age: 61 Year
  Sex: Female

DRUGS (10)
  1. LASIX [Suspect]
     Dosage: 20 MG, 1X/DAY
     Route: 048
     Dates: start: 20110413, end: 20110429
  2. ALDACTONE [Suspect]
     Dosage: 75 MG
     Route: 048
     Dates: end: 20110609
  3. LASIX [Suspect]
     Dosage: 20 MG, 1X/DAY
     Route: 048
     Dates: start: 20110101
  4. HUMALOG [Concomitant]
     Dosage: UNK
  5. LANTUS [Concomitant]
     Dosage: UNK
  6. CACIT D3 [Concomitant]
     Dosage: UNK
  7. PANTOPRAZOLE SODIUM [Suspect]
     Dosage: 40 MG, UNK
     Route: 048
     Dates: end: 20110609
  8. LASIX [Suspect]
     Dosage: 20 MG, 1X/DAY
     Route: 048
     Dates: end: 20110609
  9. ALDACTONE [Suspect]
     Dosage: 50 MG
     Route: 048
     Dates: start: 20110510, end: 20110601
  10. ALDACTONE [Suspect]
     Dosage: 75 MG, 2X/DAY
     Route: 048
     Dates: start: 20110413, end: 20110429

REACTIONS (2)
  - AGRANULOCYTOSIS [None]
  - ANAEMIA [None]
